FAERS Safety Report 13851815 (Version 1)
Quarter: 2017Q3

REPORT INFORMATION
  Report Type: Spontaneous
  Country: US (occurrence: US)
  Receive Date: 20170809
  Receipt Date: 20170809
  Transmission Date: 20171127
  Serious: No
  Sender: FDA-Public Use
  Company Number: US-ROCHE-747416

PATIENT
  Age: 60 Year
  Sex: Female
  Weight: 58.5 kg

DRUGS (3)
  1. OSTEO BI-FLEX PRODUCT NOS [Concomitant]
     Dosage: FREQUENCY: QD (ONCE A DAY)
     Route: 048
  2. BONIVA [Suspect]
     Active Substance: IBANDRONATE SODIUM
     Indication: OSTEOPOROSIS PROPHYLAXIS
     Dosage: RECEIVED ONE DOSE ONLY
     Route: 048
  3. MAGNESIUM [Concomitant]
     Active Substance: MAGNESIUM
     Route: 048

REACTIONS (3)
  - Adverse drug reaction [Unknown]
  - Back pain [Unknown]
  - Pain [Not Recovered/Not Resolved]

NARRATIVE: CASE EVENT DATE: 20101114
